FAERS Safety Report 5265135-2 (Version None)
Quarter: 2007Q1

REPORT INFORMATION
  Report Type: 
  Country: None (occurrence: None)
  Receive Date: 20061121
  Receipt Date: 20060809
  Transmission Date: 20070707
  Serious: No
  Sender: FDA-Public Use
  Company Number: TPA2006A01307

PATIENT
  Age: 62 Year
  Sex: Female
  Weight: 68.0396 kg

DRUGS (8)
  1. ROZEREM [Suspect]
     Indication: INSOMNIA
     Dosage: 8 MG, QHS, PER ORAL
     Route: 048
     Dates: start: 20060808
  2. AMBIEN [Concomitant]
  3. AMITRIPTYLINE HCL [Concomitant]
  4. SYNTHROID (LEVOTHYROXINE SODIUM) (0.1 MILLIGRAM) [Concomitant]
  5. CRESTOR [Concomitant]
  6. TOPROL (METOPROLOL SUCCINATE) (25 MILLIGRAM) [Concomitant]
  7. FOSAMAX (ALENDRONATE SODIUM) (70 MILLIGRAM) [Concomitant]
  8. MULTIVITAMIN [Concomitant]

REACTIONS (5)
  - DISCOMFORT [None]
  - DIZZINESS [None]
  - FEELING ABNORMAL [None]
  - MIDDLE INSOMNIA [None]
  - NAUSEA [None]
